FAERS Safety Report 10093745 (Version 1)
Quarter: 2014Q2

REPORT INFORMATION
  Report Type: Spontaneous
  Country: US (occurrence: US)
  Receive Date: 20140421
  Receipt Date: 20140421
  Transmission Date: 20141212
  Serious: No
  Sender: FDA-Public Use
  Company Number: US-SA-2014SA024020

PATIENT
  Age: 63 Year
  Sex: Male
  Weight: 95 kg

DRUGS (6)
  1. ALLEGRA [Suspect]
     Indication: VIRAL INFECTION
     Route: 048
     Dates: start: 20140219, end: 20140219
  2. ALLEGRA [Suspect]
     Indication: SINUS CONGESTION
     Route: 048
     Dates: start: 20140219, end: 20140219
  3. FISH OIL [Concomitant]
     Indication: CARDIOVASCULAR DISORDER
     Dosage: TAKEN FROM- FEW YEARS AGO
     Route: 065
  4. COQ10 [Concomitant]
     Indication: CARDIOVASCULAR DISORDER
     Dosage: TAKEN FROM- FEW YEARS AGO
     Route: 065
  5. ASPIRIN [Concomitant]
     Indication: CARDIOVASCULAR DISORDER
     Dosage: TAKEN FROM- FEW YEARS AGO
     Route: 065
  6. ALL OTHER THERAPEUTIC PRODUCTS [Concomitant]
     Indication: DIABETES MELLITUS
     Dosage: TAKEN FROM- 6 MONTHS
     Route: 065

REACTIONS (1)
  - Headache [Recovered/Resolved]
